FAERS Safety Report 8645095 (Version 4)
Quarter: 2012Q4

REPORT INFORMATION
  Report Type: 
  Country: JP (occurrence: JP)
  Receive Date: 20120702
  Receipt Date: 20120828
  Transmission Date: 20130627
  Serious: Yes (Other)
  Sender: FDA-Public Use
  Company Number: PHHY2012JP055792

PATIENT
  Age: 76 Year
  Sex: Female

DRUGS (4)
  1. ZOMETA [Suspect]
     Indication: METASTASES TO BONE
     Dosage: 4mg per administration
     Route: 041
     Dates: start: 200804, end: 201106
  2. ARIMIDEX [Concomitant]
     Dosage: 1 mg
     Route: 048
     Dates: start: 200804, end: 201010
  3. HERCEPTIN [Concomitant]
     Route: 042
  4. AROMASIN [Concomitant]
     Dosage: 25 mg
     Dates: start: 201010, end: 201111

REACTIONS (7)
  - Periodontal disease [Not Recovered/Not Resolved]
  - Neoplasm progression [Not Recovered/Not Resolved]
  - Malignant neoplasm progression [Not Recovered/Not Resolved]
  - Metastases to peritoneum [Unknown]
  - Gastric cancer [Not Recovered/Not Resolved]
  - Rectal cancer [Not Recovered/Not Resolved]
  - Haemoglobin decreased [Recovering/Resolving]
